FAERS Safety Report 18473873 (Version 2)
Quarter: 2021Q1

REPORT INFORMATION
  Report Type: Report from Study
  Country: US (occurrence: US)
  Receive Date: 20201106
  Receipt Date: 20210218
  Transmission Date: 20210419
  Serious: No
  Sender: FDA-Public Use
  Company Number: US-BIOVITRUM-2020US4096

PATIENT
  Sex: Female

DRUGS (1)
  1. KINERET [Suspect]
     Active Substance: ANAKINRA
     Indication: RHEUMATOID ARTHRITIS
     Route: 058
     Dates: start: 20200324

REACTIONS (6)
  - Stress [Unknown]
  - Drug ineffective [Unknown]
  - Asthenia [Unknown]
  - Injection site pain [Unknown]
  - Product dose omission issue [Recovered/Resolved]
  - Weight decreased [Unknown]
